FAERS Safety Report 8454403 (Version 2)
Quarter: 2012Q4

REPORT INFORMATION
  Report Type: 
  Country: US (occurrence: US)
  Receive Date: 20120312
  Receipt Date: 20120924
  Transmission Date: 20130627
  Serious: Yes (Other)
  Sender: FDA-Public Use
  Company Number: US-ASTRAZENECA-2012SE14567

PATIENT
  Sex: Male

DRUGS (3)
  1. BRILINTA [Suspect]
     Route: 048
  2. METOPROL [Suspect]
  3. ASPIRIN [Suspect]

REACTIONS (1)
  - Atrioventricular block second degree [Recovered/Resolved]
